FAERS Safety Report 7589172-8 (Version None)
Quarter: 2011Q3

REPORT INFORMATION
  Report Type: 
  Country: None (occurrence: None)
  Receive Date: 20110705
  Receipt Date: 20100813
  Transmission Date: 20111222
  Serious: Yes (Other)
  Sender: FDA-Public Use
  Company Number: US-BAYER-201019033NA

PATIENT
  Age: 38 Year
  Sex: Male
  Weight: 102 kg

DRUGS (34)
  1. MAGNEVIST [Suspect]
     Indication: VENOGRAM
     Route: 042
     Dates: start: 20060705, end: 20060705
  2. PROCRIT [Concomitant]
  3. MAGNEVIST [Suspect]
     Indication: FISTULOGRAM
     Route: 042
     Dates: start: 20080307, end: 20080307
  4. MULTIHANCE [Suspect]
     Indication: ANGIOGRAM
  5. MULTIHANCE [Suspect]
     Indication: NUCLEAR MAGNETIC RESONANCE IMAGING
  6. DIATX [Concomitant]
  7. RENAX [Concomitant]
  8. TRICOR [Concomitant]
  9. VENOFER [Concomitant]
  10. CONTRAST MEDIA [Suspect]
     Indication: VENOGRAM
     Dosage: 50 ML (DAILY DOSE), ,
     Dates: start: 20070815, end: 20070815
  11. CONTRAST MEDIA [Suspect]
     Indication: FISTULOGRAM
  12. PROHANCE [Suspect]
     Indication: NUCLEAR MAGNETIC RESONANCE IMAGING
  13. OPTIMARK [Suspect]
     Indication: ANGIOGRAM
  14. EPOGEN [Concomitant]
  15. HEPARIN [Concomitant]
  16. LASIX [Concomitant]
  17. ZESTRIL [Concomitant]
  18. MAGNEVIST [Suspect]
     Indication: NUCLEAR MAGNETIC RESONANCE IMAGING BRAIN
     Dates: start: 20030919, end: 20030919
  19. OPTIMARK [Suspect]
     Indication: NUCLEAR MAGNETIC RESONANCE IMAGING
  20. COUMADIN [Concomitant]
  21. RENAGEL [Concomitant]
  22. SENSIPAR [Concomitant]
  23. SULAR [Concomitant]
  24. FOSRENOL [Concomitant]
  25. WARFARIN SODIUM [Concomitant]
  26. OMNISCAN [Suspect]
     Indication: NUCLEAR MAGNETIC RESONANCE IMAGING
  27. PHOSLO [Concomitant]
  28. ZEMPLAR [Concomitant]
  29. RENVELA [Concomitant]
  30. OMNISCAN [Suspect]
     Indication: ANGIOGRAM
     Dosage: UNK
  31. PROHANCE [Suspect]
     Indication: ANGIOGRAM
  32. LISINOPRIL [Concomitant]
  33. TOPROL-XL [Concomitant]
  34. FERRLECIT [Concomitant]

REACTIONS (29)
  - PARAESTHESIA [None]
  - OEDEMA PERIPHERAL [None]
  - ASTHENIA [None]
  - LETHARGY [None]
  - DRY SKIN [None]
  - BALANCE DISORDER [None]
  - ABASIA [None]
  - TREMOR [None]
  - ANHEDONIA [None]
  - MUSCULOSKELETAL PAIN [None]
  - HYPOAESTHESIA [None]
  - PRURITUS [None]
  - MUSCLE SPASTICITY [None]
  - GAIT DISTURBANCE [None]
  - MUSCULAR WEAKNESS [None]
  - MYALGIA [None]
  - JOINT RANGE OF MOTION DECREASED [None]
  - SKIN TIGHTNESS [None]
  - NEPHROGENIC SYSTEMIC FIBROSIS [None]
  - PAIN IN EXTREMITY [None]
  - DYSSTASIA [None]
  - SKIN HYPERTROPHY [None]
  - ARTHRALGIA [None]
  - EXTREMITY CONTRACTURE [None]
  - SKIN REACTION [None]
  - MUSCULOSKELETAL STIFFNESS [None]
  - MOBILITY DECREASED [None]
  - JOINT CONTRACTURE [None]
  - BACK PAIN [None]
